FAERS Safety Report 10211245 (Version 1)
Quarter: 2014Q2

REPORT INFORMATION
  Report Type: Spontaneous
  Country: US (occurrence: US)
  Receive Date: 20140602
  Receipt Date: 20140602
  Transmission Date: 20141212
  Serious: Yes (Hospitalization)
  Sender: FDA-Public Use
  Company Number: US-GLAXOSMITHKLINE-A1070113A

PATIENT
  Sex: Female

DRUGS (8)
  1. VOTRIENT [Suspect]
     Indication: RETROPERITONEAL CANCER
     Dosage: 800MG PER DAY
     Route: 065
     Dates: start: 20140214
  2. CYMBALTA [Concomitant]
  3. SYNTHROID [Concomitant]
  4. ATIVAN [Concomitant]
  5. XENICAL [Concomitant]
  6. AMPICILLIN [Concomitant]
  7. UNKNOWN MEDICATION [Concomitant]
  8. NORCO [Concomitant]

REACTIONS (6)
  - Influenza [Unknown]
  - Chills [Unknown]
  - Vomiting [Unknown]
  - Diarrhoea [Unknown]
  - Brain oedema [Unknown]
  - Coma [Unknown]
